FAERS Safety Report 15184344 (Version 1)
Quarter: 2018Q3

REPORT INFORMATION
  Report Type: Spontaneous
  Country: US (occurrence: US)
  Receive Date: 20180723
  Receipt Date: 20180723
  Transmission Date: 20181010
  Serious: No
  Sender: FDA-Public Use
  Company Number: US-AMGEN-USASP2018073800

PATIENT
  Age: 64 Year
  Sex: Female

DRUGS (2)
  1. REPATHA [Suspect]
     Active Substance: EVOLOCUMAB
     Indication: PRODUCT USED FOR UNKNOWN INDICATION
     Dosage: 420 MG, QMO
     Route: 065
  2. PITAVASTATIN. [Concomitant]
     Active Substance: PITAVASTATIN CALCIUM
     Dosage: 2 MG, UNK

REACTIONS (1)
  - Drug effect incomplete [Unknown]
